FAERS Safety Report 5265616-1 (Version None)
Quarter: 2007Q1

REPORT INFORMATION
  Report Type: 
  Country: None (occurrence: None)
  Receive Date: 20061213
  Receipt Date: 20030331
  Transmission Date: 20070707
  Serious: Yes (Hospitalization)
  Sender: FDA-Public Use
  Company Number: 2002UW13133

PATIENT
  Age: 71 Year
  Sex: Female
  Weight: 65.0458 kg

DRUGS (1)
  1. NOLVADEX [Suspect]
     Indication: BREAST CANCER IN SITU
     Dosage: 10 MG BID PO
     Route: 048
     Dates: start: 19990101, end: 20020820

REACTIONS (3)
  - METASTASES TO LYMPH NODES [None]
  - METASTASES TO SMALL INTESTINE [None]
  - UTERINE CANCER [None]
